FAERS Safety Report 8357018 (Version 5)
Quarter: 2013Q2

REPORT INFORMATION
  Report Type: Report from Study
  Country: JP (occurrence: JP)
  Receive Date: 20120127
  Receipt Date: 20130627
  Transmission Date: 20140414
  Serious: Yes (Death, Life-Threatening, Hospitalization, Other)
  Sender: FDA-Public Use
  Company Number: JP-BRISTOL-MYERS SQUIBB COMPANY-16363293

PATIENT
  Age: 58 Year
  Sex: Male
  Weight: 57.28 kg

DRUGS (14)
  1. SPRYCEL [Suspect]
     Indication: ACUTE LYMPHOCYTIC LEUKAEMIA
     Dosage: 22D11-13JA12:140MG?30JA-16MR:50MG?30MR-9AP:20MG?10AP-15AP:50MG?16AP-1MY:100MG
     Route: 048
     Dates: start: 20111222
  2. METHOTREXATE [Suspect]
     Indication: ACUTE LYMPHOCYTIC LEUKAEMIA
     Dosage: INJ
     Route: 039
     Dates: start: 20111226, end: 20120727
  3. CYLOCIDE [Suspect]
     Indication: ACUTE LYMPHOCYTIC LEUKAEMIA
     Route: 037
     Dates: start: 20111226, end: 20120727
  4. PREDONINE [Suspect]
     Indication: ACUTE LYMPHOCYTIC LEUKAEMIA
     Dosage: INJ
     Route: 037
     Dates: start: 20111226, end: 20120727
  5. VFEND [Suspect]
     Indication: PROPHYLAXIS
     Dosage: START DATE: BEFORE FIRST ADMIN OF SPRYCEL
     Route: 048
     Dates: end: 20120117
  6. CRAVIT [Suspect]
  7. DEXART [Suspect]
     Indication: ACUTE LYMPHOCYTIC LEUKAEMIA
     Dosage: INJ
     Route: 042
     Dates: start: 20120416, end: 20120429
  8. FEBUXOSTAT [Concomitant]
     Indication: PROPHYLAXIS
     Dosage: 22-DEC-11 TO 10-JAN-12: 30 MG?10-MAY-12 TO 15-MAY-12 : 40 MG
     Route: 048
     Dates: start: 20111222, end: 20120515
  9. VASOLAN [Concomitant]
     Dosage: START DATE: GIVEN BEFORE SPRYCEL FIRST ADMIN
     Route: 048
     Dates: end: 20120117
  10. MIYA-BM [Concomitant]
     Indication: PROPHYLAXIS
     Dosage: FORM: TAB, 3TABS/DAY
     Route: 048
     Dates: start: 20111226, end: 20120117
  11. PARIET [Concomitant]
     Indication: PROPHYLAXIS
     Dosage: START DATE: BEFORE FIRST ADMIN OF SPRYCEL
     Route: 048
     Dates: end: 20120522
  12. ZOVIRAX [Concomitant]
     Indication: PROPHYLAXIS
     Dosage: START DATE: BEFORE FIRST ADMIN OF SPRYCEL
     Route: 048
     Dates: end: 20120110
  13. URSO [Concomitant]
     Indication: PROPHYLAXIS
     Dosage: START DATE: BEFORE FIRST ADMIN OF SPRYCEL
     Route: 048
     Dates: end: 20120110
  14. ISCOTIN [Concomitant]
     Indication: PROPHYLAXIS
     Dosage: START DATE: BEFORE FIRST ADMIN OF SPRYCEL
     Route: 048
     Dates: end: 20120123

REACTIONS (6)
  - Malignant neoplasm progression [Fatal]
  - Leukoencephalopathy [Recovering/Resolving]
  - Anaemia [Not Recovered/Not Resolved]
  - White blood cell count decreased [Recovered/Resolved]
  - Platelet count decreased [Recovered/Resolved]
  - Hypokalaemia [Recovered/Resolved]
